FAERS Safety Report 5162909-3 (Version None)
Quarter: 2006Q4

REPORT INFORMATION
  Report Type: 
  Country: None (occurrence: None)
  Receive Date: 20061201
  Receipt Date: 20061121
  Transmission Date: 20070319
  Serious: Yes (Hospitalization)
  Sender: FDA-Public Use
  Company Number: AT-MERCK-0611AUT00007

PATIENT

DRUGS (4)
  1. CANCIDAS [Suspect]
     Indication: NEUTROPENIA
     Route: 041
  2. CANCIDAS [Suspect]
     Indication: EVIDENCE BASED TREATMENT
     Route: 041
  3. ANTIMICROBIAL (UNSPECIFIED) [Concomitant]
     Route: 065
  4. [COMPOSITION UNSPECIFIED] [Concomitant]
     Route: 065

REACTIONS (1)
  - DRUG INEFFECTIVE [None]
